FAERS Safety Report 8729677 (Version 25)
Quarter: 2014Q4

REPORT INFORMATION
  Report Type: Spontaneous
  Country: US (occurrence: US)
  Receive Date: 20120817
  Receipt Date: 20141126
  Transmission Date: 20150529
  Serious: Yes (Death, Hospitalization, Other)
  Sender: FDA-Public Use
  Company Number: PHEH2012US016005

PATIENT
  Age: 51 Year
  Sex: Female

DRUGS (11)
  1. PROZAC [Concomitant]
     Active Substance: FLUOXETINE HYDROCHLORIDE
  2. FASLODEX [Concomitant]
     Active Substance: FULVESTRANT
  3. OXYCODONE [Concomitant]
     Active Substance: OXYCODONE
     Dosage: 10MG Q4
  4. CYMBALTA [Concomitant]
     Active Substance: DULOXETINE HYDROCHLORIDE
  5. PHENERGAN [Concomitant]
     Active Substance: PROMETHAZINE HYDROCHLORIDE
  6. ZOMETA [Suspect]
     Active Substance: ZOLEDRONIC ACID
     Indication: BREAST CANCER METASTATIC
     Dosage: 4MG Q21
     Route: 042
     Dates: end: 20091113
  7. CHEMOTHERAPEUTICS NOS [Suspect]
     Active Substance: UNSPECIFIED INGREDIENT
     Route: 065
  8. AVALIDE [Concomitant]
     Active Substance: HYDROCHLOROTHIAZIDE\IRBESARTAN
  9. RITALIN [Concomitant]
     Active Substance: METHYLPHENIDATE HYDROCHLORIDE
  10. TAMOXIFEN [Concomitant]
     Active Substance: TAMOXIFEN
  11. XANAX [Concomitant]
     Active Substance: ALPRAZOLAM
     Dosage: 0.5MG Q4 P.R.N

REACTIONS (177)
  - Diabetes mellitus [Unknown]
  - Osteomyelitis [Unknown]
  - Exposed bone in jaw [Unknown]
  - Seroma [Unknown]
  - Depression [Unknown]
  - Haemoptysis [Unknown]
  - Tendon disorder [Unknown]
  - Lymph node calcification [Unknown]
  - Oedema peripheral [Unknown]
  - Costochondritis [Unknown]
  - Bacterial infection [Unknown]
  - Blood urine present [Unknown]
  - Diastasis recti abdominis [Unknown]
  - Spinal osteoarthritis [Unknown]
  - Neuritis [Unknown]
  - Syncope [Unknown]
  - Injury [Unknown]
  - Dental caries [Unknown]
  - Thrombocytopenia [Unknown]
  - Cerumen impaction [Unknown]
  - Nausea [Unknown]
  - Cough [Unknown]
  - Limb discomfort [Unknown]
  - Osteonecrosis of jaw [Unknown]
  - Tooth loss [Unknown]
  - Lymphadenopathy [Unknown]
  - Vertebral foraminal stenosis [Unknown]
  - Mental disorder [Unknown]
  - Splenomegaly [Unknown]
  - Tonsillitis [Unknown]
  - Epistaxis [Unknown]
  - Hypoxia [Unknown]
  - Intervertebral disc protrusion [Unknown]
  - Pleural effusion [Unknown]
  - Hypoventilation [Unknown]
  - Wound [Unknown]
  - Device related infection [Unknown]
  - Drug hypersensitivity [Unknown]
  - Paraesthesia [Unknown]
  - Emotional distress [Unknown]
  - Musculoskeletal pain [Unknown]
  - Urinary retention [Unknown]
  - Musculoskeletal chest pain [Unknown]
  - Metastases to bone [Unknown]
  - Pulmonary mass [Unknown]
  - Bacterial disease carrier [Unknown]
  - Osteoarthritis [Unknown]
  - Cardiomegaly [Unknown]
  - Ascites [Unknown]
  - Nasal turbinate hypertrophy [Unknown]
  - Sleep apnoea syndrome [Unknown]
  - Meniscus injury [Unknown]
  - Dehydration [Unknown]
  - Skin ulcer [Unknown]
  - Urinary tract infection [Unknown]
  - Physical disability [Unknown]
  - Purulence [Unknown]
  - Abdominal pain [Unknown]
  - Breath sounds abnormal [Unknown]
  - Pain [Unknown]
  - Dental necrosis [Unknown]
  - Fall [Unknown]
  - Scoliosis [Unknown]
  - Splenic granuloma [Unknown]
  - Atelectasis [Unknown]
  - Lung infiltration [Not Recovered/Not Resolved]
  - Arteriosclerosis coronary artery [Unknown]
  - Nasal septum deviation [Unknown]
  - Metastases to spine [Unknown]
  - Mental status changes [Unknown]
  - Thyroid neoplasm [Unknown]
  - Impaired healing [Unknown]
  - Sinus tachycardia [Unknown]
  - Nasal ulcer [Unknown]
  - Acute febrile neutrophilic dermatosis [Unknown]
  - Osteitis [Unknown]
  - Sepsis [Unknown]
  - Aspiration bone marrow abnormal [Unknown]
  - Hypersomnia [Unknown]
  - Tricuspid valve incompetence [Unknown]
  - Aortic valve incompetence [Unknown]
  - Deformity [Unknown]
  - Tooth disorder [Unknown]
  - Primary sequestrum [Unknown]
  - Ear pain [Unknown]
  - Pyrexia [Unknown]
  - Insomnia [Unknown]
  - Hypomagnesaemia [Unknown]
  - Pain in jaw [Unknown]
  - Gingival disorder [Recovering/Resolving]
  - Infection [Unknown]
  - Bone decalcification [Unknown]
  - Abdominal hernia [Unknown]
  - Ear infection [Unknown]
  - Granuloma [Unknown]
  - Rib fracture [Unknown]
  - Epicondylitis [Unknown]
  - Thermal burn [Unknown]
  - Respiratory failure [Unknown]
  - Amnesia [Unknown]
  - Confusional state [Unknown]
  - Hypotension [Unknown]
  - Aortic dilatation [Unknown]
  - Vision blurred [Unknown]
  - Hallucination [Unknown]
  - Pollakiuria [Unknown]
  - Cystocele [Unknown]
  - Leukocytosis [Unknown]
  - Vulvovaginal dryness [Unknown]
  - Intervertebral disc displacement [Unknown]
  - Pulpitis dental [Unknown]
  - Anxiety [Unknown]
  - Dysuria [Unknown]
  - Hypokalaemia [Unknown]
  - Bone lesion [Unknown]
  - Spinal column stenosis [Unknown]
  - Sinusitis [Unknown]
  - Hypertension [Unknown]
  - Arthritis [Unknown]
  - Hypertrophy [Unknown]
  - Brain neoplasm malignant [Unknown]
  - Second primary malignancy [Unknown]
  - Splenic lesion [Unknown]
  - Staphylococcal bacteraemia [Unknown]
  - Bladder prolapse [Unknown]
  - Pain of skin [Unknown]
  - Hypoaesthesia [Unknown]
  - Delirium [Unknown]
  - Coronary artery disease [Unknown]
  - Headache [Unknown]
  - Cellulitis [Unknown]
  - Chest discomfort [Unknown]
  - Toothache [Unknown]
  - Malignant neoplasm progression [Unknown]
  - Hepatic steatosis [Unknown]
  - Cholelithiasis [Unknown]
  - Oropharyngeal pain [Unknown]
  - Neuropathy peripheral [Unknown]
  - Hepatic encephalopathy [Unknown]
  - Intervertebral disc disorder [Unknown]
  - Hepatomegaly [Unknown]
  - Acid fast bacilli infection [Unknown]
  - Hepatosplenomegaly [Unknown]
  - Gastrooesophageal reflux disease [Unknown]
  - Dyspnoea [Unknown]
  - Back pain [Unknown]
  - Anaemia [Unknown]
  - Chest pain [Unknown]
  - Death [Fatal]
  - Hypovolaemia [Unknown]
  - Arthralgia [Unknown]
  - Neoplasm progression [Unknown]
  - Sensitivity of teeth [Unknown]
  - Pneumonia [Unknown]
  - Dysphagia [Unknown]
  - Trigger finger [Unknown]
  - Splenic artery aneurysm [Unknown]
  - Haemorrhage [Unknown]
  - Catheter site infection [Unknown]
  - Vulvovaginal candidiasis [Unknown]
  - Renal disorder [Unknown]
  - Biliary dyskinesia [Unknown]
  - Pancytopenia [Unknown]
  - Pruritus [Unknown]
  - Umbilical hernia [Unknown]
  - Hypoglycaemia [Unknown]
  - Mitral valve incompetence [Unknown]
  - Tooth infection [Unknown]
  - Periodontal disease [Unknown]
  - Bone fragmentation [Unknown]
  - Pain in extremity [Unknown]
  - Fatigue [Unknown]
  - Oedema [Unknown]
  - Alopecia [Unknown]
  - Muscular weakness [Unknown]
  - Rales [Unknown]
  - Diarrhoea [Unknown]

NARRATIVE: CASE EVENT DATE: 20030721
